FAERS Safety Report 6279779-2 (Version None)
Quarter: 2009Q3

REPORT INFORMATION
  Report Type: 
  Country: None (occurrence: None)
  Receive Date: 20090723
  Receipt Date: 20081121
  Transmission Date: 20100115
  Serious: Yes (Hospitalization, Disabling, Other)
  Sender: FDA-Public Use
  Company Number: US-BAYER-200818658NA

PATIENT
  Age: 47 Year
  Sex: Male
  Weight: 101 kg

DRUGS (46)
  1. MAGNEVIST [Suspect]
     Indication: ANGIOGRAM
     Dates: start: 20050316, end: 20050316
  2. MAGNEVIST [Suspect]
     Dosage: TOTAL DAILY DOSE: 40 ML  UNIT DOSE: 20 ML
     Dates: start: 20050923, end: 20050923
  3. OMNISCAN [Suspect]
  4. OPTIMARK [Suspect]
  5. MULTIHANCE [Suspect]
  6. PROHANCE [Suspect]
  7. ROCEPHIN [Concomitant]
  8. VALCYTE [Concomitant]
     Dosage: TOTAL DAILY DOSE: 450 MG
     Route: 048
  9. REGLAN [Concomitant]
     Dosage: TOTAL DAILY DOSE: 40 MG
     Route: 048
  10. PROGRAF [Concomitant]
     Dosage: TOTAL DAILY DOSE: 1.0 MG
     Route: 048
  11. PROGRAF [Concomitant]
     Dosage: TOTAL DAILY DOSE: 10 MG
     Route: 048
  12. PROGRAF [Concomitant]
     Dosage: TOTAL DAILY DOSE: 2 MG
     Route: 048
  13. MAGNESIUM [Concomitant]
     Dosage: TOTAL DAILY DOSE: 1600 MG  UNIT DOSE: 400 MG
     Route: 048
  14. LEXAPRO [Concomitant]
     Dosage: TOTAL DAILY DOSE: 20 MG
     Route: 048
  15. LEXAPRO [Concomitant]
     Dosage: TOTAL DAILY DOSE: 10 MG
     Route: 048
  16. CELLCEPT [Concomitant]
     Dosage: TOTAL DAILY DOSE: 2000 MG  UNIT DOSE: 500 MG
     Route: 048
  17. PROTONIX [Concomitant]
     Dosage: TOTAL DAILY DOSE: 40 MG
     Route: 048
  18. HYDROCODONE [Concomitant]
     Dosage: UNIT DOSE: 10 MG
     Route: 048
  19. OXYCODONE HCL [Concomitant]
     Dosage: TOTAL DAILY DOSE: 20 MG
     Route: 048
  20. ELAVIL [Concomitant]
     Dosage: TOTAL DAILY DOSE: 25 MG
     Route: 048
  21. ELAVIL [Concomitant]
     Dosage: TOTAL DAILY DOSE: 50 MG
  22. GABAPENTIN [Concomitant]
     Dosage: TOTAL DAILY DOSE: 1200 MG
     Route: 048
  23. SENNA [Concomitant]
     Route: 048
  24. LASIX [Concomitant]
     Route: 042
  25. LASIX [Concomitant]
     Dosage: TOTAL DAILY DOSE: 80 MG
     Route: 048
  26. VICODIN [Concomitant]
     Dosage: 10/325 2 TABS TID PRN
     Route: 048
  27. NEURONTIN [Concomitant]
     Dosage: TOTAL DAILY DOSE: 600 MG
     Route: 048
  28. PRAVASTATIN [Concomitant]
     Dosage: TOTAL DAILY DOSE: 10 MG
  29. GANCICLOVIR [Concomitant]
     Indication: INFECTION PROPHYLAXIS
     Dosage: TOTAL DAILY DOSE: 450 MG
  30. GLIPIZIDE [Concomitant]
     Dosage: TOTAL DAILY DOSE: 10 MG
  31. POTASSIUM PHOSPHATES [Concomitant]
     Dosage: 1 TAB
     Route: 048
  32. SEPTRA [Concomitant]
  33. AZITHROMYCIN [Concomitant]
  34. RENAGEL [Concomitant]
  35. SENSIPAR [Concomitant]
     Route: 048
     Dates: start: 20080923
  36. ARANESP [Concomitant]
     Indication: ANAEMIA
     Route: 042
  37. FERRLECIT [Concomitant]
     Indication: MINERAL SUPPLEMENTATION
  38. ZEMPLAR [Concomitant]
     Route: 042
  39. TRACLEER [Concomitant]
     Indication: PULMONARY HYPERTENSION
  40. BIOTIN [Concomitant]
  41. LANTUS [Concomitant]
     Indication: DIABETES MELLITUS
  42. NOVOLOG [Concomitant]
  43. AVALIDE [Concomitant]
  44. VERELAN [Concomitant]
  45. CHLORTHALIDONE [Concomitant]
  46. COREG [Concomitant]

REACTIONS (42)
  - ABASIA [None]
  - ANHEDONIA [None]
  - ANXIETY [None]
  - ARTHRALGIA [None]
  - BALANCE DISORDER [None]
  - BURNING SENSATION [None]
  - DRY SKIN [None]
  - DYSPNOEA [None]
  - DYSSTASIA [None]
  - EMOTIONAL DISTRESS [None]
  - ERYTHEMA [None]
  - EXCORIATION [None]
  - EXTREMITY CONTRACTURE [None]
  - INJURY [None]
  - INSOMNIA [None]
  - JOINT RANGE OF MOTION DECREASED [None]
  - JOINT STIFFNESS [None]
  - LICHENIFICATION [None]
  - LIMB DISCOMFORT [None]
  - LUNG DISORDER [None]
  - MOBILITY DECREASED [None]
  - MUSCLE FIBROSIS [None]
  - MUSCULAR WEAKNESS [None]
  - MUSCULOSKELETAL STIFFNESS [None]
  - MYALGIA [None]
  - MYOPATHY [None]
  - NEPHROGENIC SYSTEMIC FIBROSIS [None]
  - NEUROPATHY PERIPHERAL [None]
  - OEDEMA [None]
  - OEDEMA PERIPHERAL [None]
  - PAIN [None]
  - PAIN IN EXTREMITY [None]
  - PARAESTHESIA [None]
  - PRURITUS GENERALISED [None]
  - PULMONARY FIBROSIS [None]
  - PULMONARY HYPERTENSION [None]
  - SCAR [None]
  - SKIN HYPERTROPHY [None]
  - SKIN INDURATION [None]
  - SKIN LESION [None]
  - SKIN TIGHTNESS [None]
  - SKIN ULCER [None]
